FAERS Safety Report 16041298 (Version 1)
Quarter: 2019Q1

REPORT INFORMATION
  Report Type: Spontaneous
  Country: US (occurrence: US)
  Receive Date: 20190306
  Receipt Date: 20190306
  Transmission Date: 20190418
  Serious: No
  Sender: FDA-Public Use
  Company Number: US-AKORN PHARMACEUTICALS-2018AKN01476

PATIENT
  Age: 26 Year
  Sex: Female
  Weight: 52.15 kg

DRUGS (3)
  1. PROBIOTICS [Concomitant]
     Active Substance: PROBIOTICS NOS
  2. MYORISAN [Suspect]
     Active Substance: ISOTRETINOIN
     Indication: ACNE
     Dosage: UNK
     Dates: start: 20180911, end: 20180921
  3. ADVIL [Concomitant]
     Active Substance: IBUPROFEN
     Dosage: ^OCCASIONAL^

REACTIONS (5)
  - Nausea [Recovered/Resolved]
  - Headache [Recovered/Resolved]
  - Abdominal pain upper [Recovered/Resolved]
  - Dizziness [Recovered/Resolved]
  - Paraesthesia [Recovered/Resolved]

NARRATIVE: CASE EVENT DATE: 20180919
